FAERS Safety Report 7768833-1 (Version None)
Quarter: 2011Q3

REPORT INFORMATION
  Report Type: 
  Country: None (occurrence: None)
  Receive Date: 20110922
  Receipt Date: 20110916
  Transmission Date: 20111222
  Serious: Yes (Hospitalization)
  Sender: FDA-Public Use
  Company Number: DE-B.I. PHARMACEUTICALS,INC./RIDGEFIELD-2011-DE-05188DE

PATIENT
  Sex: Male
  Weight: 88 kg

DRUGS (6)
  1. DUSODRIL 100 [Concomitant]
  2. PANTOZOL 40 [Concomitant]
  3. DABIGATRAN [Suspect]
     Dosage: 300 MG
     Route: 048
     Dates: start: 20100527, end: 20100827
  4. CLEXANE 40 [Concomitant]
  5. BERLOSIN 500 [Concomitant]
  6. CIPROBAY 500 [Concomitant]

REACTIONS (2)
  - PANCREATITIS [None]
  - GALLBLADDER CANCER [None]
